FAERS Safety Report 8906514 (Version 2)
Quarter: 2012Q4

REPORT INFORMATION
  Report Type: Spontaneous
  Country: CA (occurrence: None)
  Receive Date: 20121108
  Receipt Date: 20121113
  Transmission Date: 20130627
  Serious: Yes (Other)
  Sender: FDA-Public Use
  Company Number: 2012AP003739

PATIENT
  Age: 51 Year
  Sex: Male

DRUGS (9)
  1. ATORVASTATIN [Suspect]
     Indication: HYPERLIPIDAEMIA
  2. AMLODIPINE (AMLODIPINE) [Suspect]
  3. VALSARTAN (VALSARTAN) [Concomitant]
  4. NIFEDIPINE (NIFEDIPINE) [Concomitant]
  5. ASPIRIN (ACETYLSALICYLIC ACID) [Concomitant]
  6. CLOPIDOGREL (CLOPIDOGREL) [Concomitant]
  7. RAMIPRIL (RAMIPRIL) [Concomitant]
  8. BISOPROLOL (BISOPROLOL) [Concomitant]
  9. PANTOPRAZOLE (PANTOPRAZOLE) [Concomitant]

REACTIONS (8)
  - Hepatotoxicity [None]
  - Chest discomfort [None]
  - Hepatic enzyme increased [None]
  - Aspartate aminotransferase increased [None]
  - Alanine aminotransferase increased [None]
  - Blood cholesterol increased [None]
  - Low density lipoprotein increased [None]
  - Haemoglobin decreased [None]
